FAERS Safety Report 24928691 (Version 1)
Quarter: 2025Q1

REPORT INFORMATION
  Report Type: Spontaneous
  Country: US (occurrence: None)
  Receive Date: 20250204
  Receipt Date: 20250204
  Transmission Date: 20250409
  Serious: Yes (Other)
  Sender: FDA-CTU
  Company Number: None

PATIENT
  Age: 58 Year
  Sex: Female

DRUGS (5)
  1. GLATIRAMER ACETATE [Suspect]
     Active Substance: GLATIRAMER ACETATE
     Indication: Multiple sclerosis
  2. ASCORBIC ACID [Concomitant]
     Active Substance: ASCORBIC ACID
  3. D [Concomitant]
  4. D [Concomitant]
  5. B12 [Concomitant]

REACTIONS (10)
  - Flushing [None]
  - Dyspnoea [None]
  - Choking sensation [None]
  - Cyanosis [None]
  - Palpitations [None]
  - Panic reaction [None]
  - Hyperhidrosis [None]
  - Nausea [None]
  - Pain [None]
  - Post procedural complication [None]

NARRATIVE: CASE EVENT DATE: 20240517
